FAERS Safety Report 14296406 (Version 2)
Quarter: 2018Q1

REPORT INFORMATION
  Report Type: Report from Study
  Country: US (occurrence: US)
  Receive Date: 20171218
  Receipt Date: 20180108
  Transmission Date: 20180509
  Serious: Yes (Other)
  Sender: FDA-Public Use
  Company Number: US-JNJFOC-20170608533

PATIENT
  Sex: Female

DRUGS (14)
  1. NORCO [Concomitant]
     Active Substance: ACETAMINOPHEN\HYDROCODONE BITARTRATE
  2. EVISTA [Concomitant]
     Active Substance: RALOXIFENE HYDROCHLORIDE
  3. ALLOPURINOL. [Concomitant]
     Active Substance: ALLOPURINOL
  4. IMBRUVICA [Suspect]
     Active Substance: IBRUTINIB
     Indication: CHRONIC LYMPHOCYTIC LEUKAEMIA
     Route: 048
     Dates: start: 20170523
  5. MULTIVITAMINS [Concomitant]
     Active Substance: VITAMINS
  6. VITAMIN B12 [Concomitant]
     Active Substance: CYANOCOBALAMIN
  7. IMBRUVICA [Suspect]
     Active Substance: IBRUTINIB
     Indication: CHRONIC LYMPHOCYTIC LEUKAEMIA
     Route: 048
     Dates: start: 20170524
  8. IMBRUVICA [Suspect]
     Active Substance: IBRUTINIB
     Indication: CHRONIC LYMPHOCYTIC LEUKAEMIA
     Route: 048
     Dates: start: 20170529
  9. VITAMIN B [Concomitant]
     Active Substance: VITAMIN B
  10. TIZANIDINE. [Concomitant]
     Active Substance: TIZANIDINE
  11. VITAMIN D [Concomitant]
     Active Substance: CHOLECALCIFEROL
  12. BIFIDOBACTERIUM LACTIS [Concomitant]
     Active Substance: BIFIDOBACTERIUM ANIMALIS LACTIS
  13. APAP W/HYDROCODONE [Concomitant]
     Active Substance: ACETAMINOPHEN\HYDROCODONE
  14. CALCIUM [Concomitant]
     Active Substance: CALCIUM

REACTIONS (21)
  - Oral pain [Not Recovered/Not Resolved]
  - Pain [Unknown]
  - Abscess [Unknown]
  - Discomfort [Unknown]
  - Fatigue [Not Recovered/Not Resolved]
  - Hypersensitivity [Unknown]
  - Tooth extraction [Unknown]
  - Peripheral swelling [Recovered/Resolved]
  - Sinusitis [Unknown]
  - Compression fracture [Unknown]
  - Paraesthesia [Unknown]
  - Back disorder [Unknown]
  - Stomatitis [Unknown]
  - Dysgeusia [Unknown]
  - Muscle spasms [Unknown]
  - Dry mouth [Not Recovered/Not Resolved]
  - Flatulence [Unknown]
  - Burning sensation [Unknown]
  - Pain in extremity [Unknown]
  - Tooth discolouration [Unknown]
  - Onychoclasis [Unknown]

NARRATIVE: CASE EVENT DATE: 2017
